FAERS Safety Report 13540046 (Version 1)
Quarter: 2017Q2

REPORT INFORMATION
  Report Type: Spontaneous
  Country: US (occurrence: US)
  Receive Date: 20170512
  Receipt Date: 20170512
  Transmission Date: 20170830
  Serious: No
  Sender: FDA-Public Use
  Company Number: US-GLAXOSMITHKLINE-US2017GSK069070

PATIENT
  Sex: Female

DRUGS (5)
  1. COUMADIN [Concomitant]
     Active Substance: WARFARIN SODIUM
  2. FLOLAN DILUENT PH 12 SOLUTION FOR INJECTION [Suspect]
     Active Substance: GLYCINE\MANNITOL\SODIUM CHLORIDE
     Indication: PULMONARY HYPERTENSION
  3. REVATIO [Concomitant]
     Active Substance: SILDENAFIL CITRATE
  4. OPSUMIT [Concomitant]
     Active Substance: MACITENTAN
  5. FLOLAN [Suspect]
     Active Substance: EPOPROSTENOL SODIUM
     Indication: PULMONARY HYPERTENSION
     Dosage: 22 DF, CO
     Dates: start: 20101222

REACTIONS (4)
  - Skin discolouration [Unknown]
  - Sinus disorder [Unknown]
  - Accidental overdose [Unknown]
  - Headache [Unknown]
